FAERS Safety Report 20152101 (Version 1)
Quarter: 2021Q4

REPORT INFORMATION
  Report Type: Spontaneous
  Country: CA (occurrence: CA)
  Receive Date: 20211206
  Receipt Date: 20211206
  Transmission Date: 20220303
  Serious: Yes (Hospitalization)
  Sender: FDA-Public Use
  Company Number: CA-TEVA-2021-CA-1983869

PATIENT
  Age: 32 Year
  Sex: Male

DRUGS (6)
  1. BISOPROLOL [Suspect]
     Active Substance: BISOPROLOL
     Indication: Norepinephrine increased
     Route: 065
  2. MAGNESIUM SULFATE [Concomitant]
     Active Substance: MAGNESIUM SULFATE
  3. METHIMAZOLE [Concomitant]
     Active Substance: METHIMAZOLE
  4. POTASSIUM CHLORIDE [Concomitant]
     Active Substance: POTASSIUM CHLORIDE
  5. TESTOSTERONE CYPIONATE [Concomitant]
     Active Substance: TESTOSTERONE CYPIONATE
  6. Kelp and Iodine weight loss supplements [Concomitant]

REACTIONS (4)
  - Hyperkalaemia [Recovered/Resolved]
  - Secondary hypogonadism [Recovered/Resolved]
  - Thyrotoxic periodic paralysis [Recovered/Resolved]
  - Tri-iodothyronine free decreased [Recovered/Resolved]
